FAERS Safety Report 8178240-8 (Version None)
Quarter: 2012Q1

REPORT INFORMATION
  Report Type: 
  Country: None (occurrence: None)
  Receive Date: 20120301
  Receipt Date: 20120221
  Transmission Date: 20120608
  Serious: Yes (Hospitalization)
  Sender: FDA-Public Use
  Company Number: US-JNJFOC-20111204569

PATIENT
  Sex: Male
  Weight: 108 kg

DRUGS (10)
  1. MESALAMINE [Concomitant]
     Route: 048
  2. CALCIUM CARBONATE [Concomitant]
  3. REMICADE [Suspect]
     Route: 042
     Dates: start: 20111129
  4. REMICADE [Suspect]
     Route: 042
     Dates: start: 20110413
  5. BIAXIN [Concomitant]
     Indication: RESPIRATORY TRACT INFECTION
     Dates: start: 20111201
  6. ACETAMINOPHEN [Concomitant]
  7. VITAMIN D [Concomitant]
  8. MUCINEX [Concomitant]
  9. REMICADE [Suspect]
     Indication: CROHN'S DISEASE
     Route: 042
     Dates: start: 20120110
  10. ALBUTEROL [Concomitant]

REACTIONS (2)
  - DRUG INEFFECTIVE [None]
  - CROHN'S DISEASE [None]
